FAERS Safety Report 8528461-7 (Version None)
Quarter: 2012Q3

REPORT INFORMATION
  Report Type: 
  Country: None (occurrence: None)
  Receive Date: 20120723
  Receipt Date: 20120716
  Transmission Date: 20120928
  Serious: Yes (Death, Hospitalization)
  Sender: FDA-Public Use
  Company Number: TW-AMGEN-TWNSP2012042069

PATIENT
  Age: 81 Year
  Sex: Male

DRUGS (8)
  1. ENBREL [Suspect]
     Indication: RHEUMATOID ARTHRITIS
     Dosage: 25MG BIW
     Route: 058
     Dates: start: 20051205, end: 20120515
  2. PREDNISOLONE [Concomitant]
  3. DOXAZOSIN MESYLATE [Concomitant]
  4. ACETYLCYSTEINE [Concomitant]
     Dosage: UNK
  5. PROCATEROL HCL [Concomitant]
  6. THEOPHYLLINE [Concomitant]
  7. PRETERAX                           /01421201/ [Concomitant]
  8. TAMSULOSIN HCL [Concomitant]

REACTIONS (2)
  - PNEUMOTHORAX [None]
  - FALL [None]
